FAERS Safety Report 11401311 (Version 1)
Quarter: 2015Q3

REPORT INFORMATION
  Report Type: Spontaneous
  Country: NL (occurrence: NL)
  Receive Date: 20150820
  Receipt Date: 20150820
  Transmission Date: 20151125
  Serious: Yes (Death, Hospitalization, Other)
  Sender: FDA-Public Use
  Company Number: NL-GILEAD-2015-0167633

PATIENT
  Age: 75 Year
  Sex: Male

DRUGS (1)
  1. ZYDELIG [Suspect]
     Active Substance: IDELALISIB
     Indication: CHRONIC LYMPHOCYTIC LEUKAEMIA
     Dosage: UNK
     Route: 065
     Dates: start: 20150625, end: 20150719

REACTIONS (7)
  - Mucosal inflammation [Recovered/Resolved]
  - Escherichia infection [Unknown]
  - Constipation [Unknown]
  - Death [Fatal]
  - Abdominal pain [Recovered/Resolved]
  - Cytopenia [Unknown]
  - Splenomegaly [Unknown]

NARRATIVE: CASE EVENT DATE: 201508
